FAERS Safety Report 8726190 (Version 3)
Quarter: 2012Q4

REPORT INFORMATION
  Report Type: Report from Study
  Country: GR (occurrence: GR)
  Receive Date: 20120816
  Receipt Date: 20121015
  Transmission Date: 20130627
  Serious: Yes (Hospitalization)
  Sender: FDA-Public Use
  Company Number: GR-AMGEN-GRCCT2012050759

PATIENT
  Age: 58 Year
  Sex: Male
  Weight: 79 kg

DRUGS (13)
  1. PANITUMUMAB [Suspect]
     Indication: COLORECTAL CANCER METASTATIC
     Dosage: 710 mg, q3wk
     Route: 042
     Dates: start: 20120525, end: 20120731
  2. ARANESP [Concomitant]
     Indication: ANAEMIA
     Dosage: 500 mug, q3wk
     Route: 058
     Dates: start: 20120616
  3. OXALIPLATIN [Concomitant]
     Indication: COLORECTAL CANCER METASTATIC
     Dosage: 250 mg, q3wk
     Route: 042
     Dates: start: 20120525, end: 20120731
  4. CAPECITABINE [Concomitant]
     Indication: COLORECTAL CANCER METASTATIC
     Dosage: 4000 mg, qd
     Route: 048
     Dates: start: 20120525, end: 20120802
  5. TENORMIN [Concomitant]
     Indication: HYPERTENSION
     Dosage: 50 mg, qd
     Route: 048
     Dates: start: 2007
  6. XATRAL [Concomitant]
     Indication: BENIGN PROSTATIC HYPERPLASIA
     Dosage: 2.5 mg, UNK
     Route: 048
     Dates: start: 2009
  7. LEGOFER [Concomitant]
     Indication: ANAEMIA
     Dosage: 500 mg, bid
     Route: 048
     Dates: start: 20120515
  8. ZOFRAN [Concomitant]
     Indication: PROPHYLAXIS
     Dosage: UNK
     Dates: start: 20120526, end: 20120527
  9. SOLDESANIL [Concomitant]
     Indication: PROPHYLAXIS
     Dosage: UNK
     Dates: start: 20120526, end: 20120528
  10. NAPROSYN [Concomitant]
     Indication: PYREXIA
     Dosage: 500 mg, bid
     Route: 048
     Dates: start: 20120615
  11. DALACIN [Concomitant]
     Indication: RASH
     Dosage: UNK UNK, qd
     Dates: start: 20120710
  12. FUCICORT [Concomitant]
     Indication: RASH
     Dosage: UNK
     Dates: start: 20120710
  13. BLOOD BUILDER [Concomitant]
     Indication: ANAEMIA
     Dosage: UNK
     Dates: start: 20120504, end: 20120504

REACTIONS (1)
  - Intestinal perforation [Recovered/Resolved]
